FAERS Safety Report 15001303 (Version 1)
Quarter: 2018Q2

REPORT INFORMATION
  Report Type: Spontaneous
  Country: US (occurrence: US)
  Receive Date: 20180612
  Receipt Date: 20180612
  Transmission Date: 20180711
  Serious: Yes (Hospitalization)
  Sender: FDA-Public Use
  Company Number: US-CELGENEUS-USA-20180602669

PATIENT
  Age: 66 Year
  Sex: Male
  Weight: 115.77 kg

DRUGS (5)
  1. REVLIMID [Suspect]
     Active Substance: LENALIDOMIDE
     Indication: PLASMA CELL MYELOMA
     Dosage: 25 MILLIGRAM
     Route: 048
     Dates: start: 20180216
  2. ASPIRIN. [Concomitant]
     Active Substance: ASPIRIN
     Indication: PROPHYLAXIS
     Dosage: 81 MILLIGRAM
     Route: 048
     Dates: start: 20180309
  3. HYDROCODONE-ACETAMINOPHEN [Concomitant]
     Active Substance: ACETAMINOPHEN\HYDROCODONE
     Indication: PAIN
     Dosage: 5-300MG
     Route: 048
     Dates: start: 20180309
  4. ACYCLOVIR. [Concomitant]
     Active Substance: ACYCLOVIR
     Indication: HERPES ZOSTER
     Dosage: 400 MILLIGRAM
     Route: 048
     Dates: start: 20180309
  5. FLOMAX [Concomitant]
     Active Substance: TAMSULOSIN HYDROCHLORIDE
     Indication: PROSTATIC DISORDER
     Dosage: .4 MILLIGRAM
     Route: 048
     Dates: start: 20180309

REACTIONS (3)
  - Sinusitis [Unknown]
  - Pyrexia [Unknown]
  - Neutropenia [Unknown]

NARRATIVE: CASE EVENT DATE: 20180531
